FAERS Safety Report 6518680-3 (Version None)
Quarter: 2009Q4

REPORT INFORMATION
  Report Type: 
  Country: None (occurrence: None)
  Receive Date: 20091228
  Receipt Date: 20091217
  Transmission Date: 20100525
  Serious: Yes (Other)
  Sender: FDA-Public Use
  Company Number: FR-ROCHE-675696

PATIENT
  Age: 66 Year
  Sex: Male

DRUGS (9)
  1. TAMIFLU [Suspect]
     Route: 048
     Dates: start: 20091211
  2. DOLIPRANE [Concomitant]
  3. MONOZECLAR [Concomitant]
  4. RHINOFLUIMUCIL [Concomitant]
  5. RESPILENE [Concomitant]
  6. TRIATEC [Concomitant]
     Dosage: DRUG: TRIATEC 10
  7. LASILIX [Concomitant]
  8. SINTROM [Concomitant]
     Indication: ARRHYTHMIA
  9. ANTIVITAMIN K [Concomitant]

REACTIONS (2)
  - INTERNATIONAL NORMALISED RATIO INCREASED [None]
  - PROTHROMBIN TIME SHORTENED [None]
